FAERS Safety Report 23759976 (Version 1)
Quarter: 2024Q2

REPORT INFORMATION
  Report Type: Spontaneous
  Country: JP (occurrence: JP)
  Receive Date: 20240419
  Receipt Date: 20240419
  Transmission Date: 20240716
  Serious: Yes (Death, Other)
  Sender: FDA-Public Use
  Company Number: JP-SUN PHARMACEUTICAL INDUSTRIES LTD-2024RR-442465

PATIENT
  Age: 46 Year
  Sex: Female

DRUGS (14)
  1. LETROZOLE [Suspect]
     Active Substance: LETROZOLE
     Indication: Metastases to liver
     Dosage: UNK
     Route: 065
  2. CAPECITABINE [Suspect]
     Active Substance: CAPECITABINE
     Indication: Metastases to liver
     Dosage: UNK
     Route: 065
  3. GEMCITABINE [Suspect]
     Active Substance: GEMCITABINE
     Indication: Metastases to bone
     Dosage: UNK
     Route: 065
  4. PACLITAXEL [Suspect]
     Active Substance: PACLITAXEL
     Indication: Metastases to liver
     Dosage: UNK
     Route: 065
  5. PACLITAXEL [Suspect]
     Active Substance: PACLITAXEL
     Indication: Metastases to bone
  6. BEVACIZUMAB [Suspect]
     Active Substance: BEVACIZUMAB
     Indication: Metastases to liver
     Dosage: UNK
     Route: 065
  7. BEVACIZUMAB [Suspect]
     Active Substance: BEVACIZUMAB
     Indication: Metastases to bone
  8. ERIBULIN [Suspect]
     Active Substance: ERIBULIN
     Indication: Metastases to liver
     Dosage: UNK
     Route: 065
  9. ABEMACICLIB [Suspect]
     Active Substance: ABEMACICLIB
     Indication: Metastases to liver
     Dosage: UNK
     Route: 065
  10. NIVOLUMAB [Suspect]
     Active Substance: NIVOLUMAB
     Indication: Metastases to liver
     Dosage: UNK
     Route: 065
  11. FULVESTRANT [Suspect]
     Active Substance: FULVESTRANT
     Indication: Metastases to bone
  12. VINORELBINE [Suspect]
     Active Substance: VINORELBINE TARTRATE
     Indication: Metastases to liver
     Dosage: UNK
     Route: 065
  13. GEMCITABINE [Suspect]
     Active Substance: GEMCITABINE
     Indication: Metastases to bone
  14. TOREMIFENE [Suspect]
     Active Substance: TOREMIFENE

REACTIONS (6)
  - Disease progression [Fatal]
  - Condition aggravated [Unknown]
  - Drug ineffective [Unknown]
  - Drug resistance [Unknown]
  - Drug intolerance [Unknown]
  - Toxicity to various agents [Unknown]
